FAERS Safety Report 24545446 (Version 1)
Quarter: 2024Q4

REPORT INFORMATION
  Report Type: Spontaneous
  Country: PA (occurrence: PA)
  Receive Date: 20241024
  Receipt Date: 20241024
  Transmission Date: 20250115
  Serious: Yes (Other)
  Sender: SANDOZ
  Company Number: PA-002147023-NVSC2024PA205320

PATIENT
  Sex: Female

DRUGS (4)
  1. FULVESTRANT [Suspect]
     Active Substance: FULVESTRANT
     Indication: Product used for unknown indication
     Dosage: UNK
     Route: 065
  2. KISQALI [Suspect]
     Active Substance: RIBOCICLIB
     Indication: Breast cancer metastatic
     Dosage: 2 DOSAGE FORM, QD
     Route: 048
     Dates: start: 20240806
  3. KISQALI [Suspect]
     Active Substance: RIBOCICLIB
     Indication: Metastases to bone
  4. KISQALI [Suspect]
     Active Substance: RIBOCICLIB
     Indication: Metastases to lung

REACTIONS (6)
  - Metastases to liver [Unknown]
  - Syncope [Unknown]
  - Feeling abnormal [Unknown]
  - Diarrhoea [Unknown]
  - Asthenia [Unknown]
  - Nausea [Unknown]
